FAERS Safety Report 5376713-4 (Version None)
Quarter: 2007Q3

REPORT INFORMATION
  Report Type: 
  Country: None (occurrence: None)
  Receive Date: 20070703
  Receipt Date: 20070621
  Transmission Date: 20080115
  Serious: Yes (Disabling)
  Sender: FDA-Public Use
  Company Number: HQWYE853029JUN07

PATIENT
  Age: 24 Year
  Sex: Female

DRUGS (1)
  1. EFFEXOR [Suspect]
     Dosage: WEANING OFF - TAPERING BY 5 MG EVERY 3 WEEKS

REACTIONS (6)
  - CHILLS [None]
  - DIZZINESS [None]
  - DRUG WITHDRAWAL SYNDROME [None]
  - NAUSEA [None]
  - TREMOR [None]
  - VOMITING [None]
